FAERS Safety Report 7384494-8 (Version None)
Quarter: 2011Q1

REPORT INFORMATION
  Report Type: 
  Country: None (occurrence: None)
  Receive Date: 20110330
  Receipt Date: 20110328
  Transmission Date: 20110831
  Serious: Yes (Other)
  Sender: FDA-Public Use
  Company Number: US-PFIZER INC-2011069070

PATIENT
  Sex: Female
  Weight: 54 kg

DRUGS (2)
  1. ZOLOFT [Suspect]
     Indication: EPILEPSY
     Dosage: 100 MG, 2X/DAY
     Route: 048
  2. LAMICTAL [Concomitant]
     Indication: EPILEPSY
     Dosage: 200 MG, 2X/DAY

REACTIONS (1)
  - CAROTID ARTERY OCCLUSION [None]
